FAERS Safety Report 6620661-6 (Version None)
Quarter: 2010Q1

REPORT INFORMATION
  Report Type: 
  Country: None (occurrence: None)
  Receive Date: 20100309
  Receipt Date: 20100226
  Transmission Date: 20100710
  Serious: Yes (Other)
  Sender: FDA-Public Use
  Company Number: US-PFIZER INC-2010025500

PATIENT
  Sex: Female
  Weight: 59 kg

DRUGS (3)
  1. GEMFIBROZIL [Suspect]
     Indication: BLOOD TRIGLYCERIDES INCREASED
     Dosage: 600 MG, UNK
     Route: 048
     Dates: end: 20100225
  2. ALLEGRA [Concomitant]
     Indication: HYPERSENSITIVITY
     Dosage: UNK
     Route: 048
  3. IRON [Concomitant]
     Indication: ANAEMIA
     Dosage: UNK

REACTIONS (1)
  - METAPLASIA [None]
